FAERS Safety Report 4747230-7 (Version None)
Quarter: 2005Q3

REPORT INFORMATION
  Report Type: 
  Country: None (occurrence: None)
  Receive Date: 20050815
  Receipt Date: 20050801
  Transmission Date: 20060218
  Serious: Yes (Hospitalization, Other)
  Sender: FDA-Public Use
  Company Number: 2005109587

PATIENT
  Age: 67 Year
  Sex: Male

DRUGS (6)
  1. CARDURA [Suspect]
     Indication: BENIGN PROSTATIC HYPERPLASIA
     Dosage: 4 MG (4 MG, DAILY), ORAL
     Route: 048
  2. VIAGRA [Suspect]
     Indication: ERECTILE DYSFUNCTION
     Dosage: AS NECESSARY, ORAL
     Route: 048
  3. VITAMIN B6 (VITAMIN B6) [Concomitant]
  4. VITAMIN B12 [Concomitant]
  5. GLUTAMINE (LEVOGLUTAMIDE) [Concomitant]
  6. PUMPKIN OIL (PUMPKIN OIL) [Concomitant]

REACTIONS (10)
  - BLOOD TESTOSTERONE DECREASED [None]
  - DRUG EFFECT DECREASED [None]
  - ERECTILE DYSFUNCTION [None]
  - FALL [None]
  - LIMB INJURY [None]
  - LOWER LIMB FRACTURE [None]
  - PAIN IN EXTREMITY [None]
  - PERIPHERAL VASCULAR DISORDER [None]
  - RENAL FAILURE [None]
  - SKIN GRAFT [None]
